FAERS Safety Report 14931413 (Version 1)
Quarter: 2018Q2

REPORT INFORMATION
  Report Type: Spontaneous
  Country: DE (occurrence: DE)
  Receive Date: 20180524
  Receipt Date: 20180524
  Transmission Date: 20180711
  Serious: Yes (Hospitalization, Other)
  Sender: FDA-Public Use
  Company Number: DE-ASTRAZENECA-2018SE64984

PATIENT
  Age: 60 Year
  Sex: Male

DRUGS (4)
  1. ARIPIPRAZOLE. [Suspect]
     Active Substance: ARIPIPRAZOLE
     Indication: PRODUCT USED FOR UNKNOWN INDICATION
     Route: 048
  2. CIATYL Z ACUPHASE [Suspect]
     Active Substance: ZUCLOPENTHIXOL
     Indication: PRODUCT USED FOR UNKNOWN INDICATION
     Route: 030
     Dates: start: 20170107
  3. QUILONUM [Suspect]
     Active Substance: LITHIUM CARBONATE
     Indication: PRODUCT USED FOR UNKNOWN INDICATION
     Route: 048
  4. SEROQUEL [Suspect]
     Active Substance: QUETIAPINE FUMARATE
     Indication: PRODUCT USED FOR UNKNOWN INDICATION
     Route: 048
     Dates: start: 20161228, end: 20161230

REACTIONS (12)
  - Compulsions [Unknown]
  - Akathisia [Unknown]
  - Chills [Unknown]
  - Aphasia [Unknown]
  - Restlessness [Unknown]
  - Movement disorder [Unknown]
  - Extrapyramidal disorder [Unknown]
  - Hypokinesia [Unknown]
  - Feeding disorder [Unknown]
  - Parkinson^s disease [Unknown]
  - Underdose [Unknown]
  - Dysgraphia [Unknown]

NARRATIVE: CASE EVENT DATE: 20170112
